FAERS Safety Report 7658897-8 (Version None)
Quarter: 2011Q3

REPORT INFORMATION
  Report Type: 
  Country: None (occurrence: None)
  Receive Date: 20110804
  Receipt Date: 20110804
  Transmission Date: 20111222
  Serious: Yes (Other)
  Sender: FDA-Public Use
  Company Number: None

PATIENT
  Sex: Female
  Weight: 81.6475 kg

DRUGS (1)
  1. METRONIDAZOLE [Suspect]
     Indication: VAGINITIS BACTERIAL
     Dosage: 500MG BID ORAL 2/17 FOR 15 DAYS
     Route: 048

REACTIONS (4)
  - DYSGEUSIA [None]
  - TONGUE DISCOLOURATION [None]
  - DIARRHOEA [None]
  - DRUG INEFFECTIVE [None]
